FAERS Safety Report 12970361 (Version 1)
Quarter: 2016Q4

REPORT INFORMATION
  Report Type: Not Available
  Country: FR (occurrence: FR)
  Receive Date: 20161123
  Receipt Date: 20161123
  Transmission Date: 20170207
  Serious: Yes (Hospitalization)
  Sender: FDA-Public Use
  Company Number: FR-MUNDIPHARMA DS AND PHARMACOVIGILANCE-GBR-2016-0041866

PATIENT
  Age: 84 Year
  Sex: Female

DRUGS (18)
  1. GALVUS [Suspect]
     Active Substance: VILDAGLIPTIN
     Indication: DIABETES MELLITUS
     Dosage: 50 MG, DAILY
     Route: 048
     Dates: start: 20161017, end: 20161020
  2. PARACETAMOL [Concomitant]
     Active Substance: ACETAMINOPHEN
     Dosage: 1 G, QID
     Route: 042
     Dates: start: 20161013
  3. SERETIDE [Concomitant]
     Active Substance: FLUTICASONE PROPIONATE\SALMETEROL XINAFOATE
     Dosage: 1 PUFF, BID
  4. OXYNORMORO [Suspect]
     Active Substance: OXYCODONE
     Indication: PAIN
     Dosage: 5 MG, QID
     Route: 048
     Dates: start: 20161016, end: 20161020
  5. AMLODIPINE [Concomitant]
     Active Substance: AMLODIPINE BESYLATE
     Dosage: 10 MG, DAILY
     Route: 048
  6. LANTUS [Concomitant]
     Active Substance: INSULIN GLARGINE
     Dosage: 22 IU, UNK
     Dates: end: 20161017
  7. PARACETAMOL [Concomitant]
     Active Substance: ACETAMINOPHEN
     Dosage: 1 G, TID
     Route: 042
     Dates: start: 20161014
  8. RISPERDAL CONSTA [Concomitant]
     Active Substance: RISPERIDONE
     Indication: DEMENTIA
     Dosage: UNK
     Dates: start: 2010
  9. AMIODARONE [Concomitant]
     Active Substance: AMIODARONE
     Dosage: 200 MG, 5X/WEEK
  10. NOVORAPID [Concomitant]
     Active Substance: INSULIN ASPART
     Dosage: UNK
     Dates: end: 20161017
  11. MIANSERINE [Concomitant]
     Active Substance: MIANSERIN HYDROCHLORIDE
     Dosage: 60 MG, DAILY
  12. OXYCONTIN [Suspect]
     Active Substance: OXYCODONE HYDROCHLORIDE
     Indication: PAIN
     Dosage: 10 MG, BID
     Route: 048
     Dates: start: 20161016, end: 20161020
  13. LASILIX                            /00032601/ [Concomitant]
     Active Substance: FUROSEMIDE
     Dosage: 40 MG, DAILY
  14. LEVOTHYROX [Concomitant]
     Active Substance: LEVOTHYROXINE
     Dosage: 100 MCG, DAILY
  15. CONTRAMAL [Concomitant]
     Active Substance: TRAMADOL HYDROCHLORIDE
     Dosage: 50 MG, TID
     Route: 042
     Dates: start: 20161013, end: 20161016
  16. EXELON [Concomitant]
     Active Substance: RIVASTIGMINE TARTRATE
     Indication: DEMENTIA
     Dosage: UNK
     Route: 062
     Dates: start: 2010
  17. MOPRAL                             /00661201/ [Concomitant]
     Active Substance: OMEPRAZOLE SODIUM
  18. EXELON [Concomitant]
     Active Substance: RIVASTIGMINE TARTRATE
     Dosage: 9.5MG/24H PATCH EVERY 24H
     Route: 062

REACTIONS (2)
  - Cholestasis [Unknown]
  - Cell death [Unknown]

NARRATIVE: CASE EVENT DATE: 20161018
